FAERS Safety Report 13276723 (Version 1)
Quarter: 2017Q1

REPORT INFORMATION
  Report Type: Spontaneous
  Country: US (occurrence: US)
  Receive Date: 20170228
  Receipt Date: 20170228
  Transmission Date: 20170428
  Serious: Yes (Hospitalization)
  Sender: FDA-Public Use
  Company Number: None

PATIENT
  Age: 57 Year
  Sex: Male

DRUGS (4)
  1. PREDNISONE. [Suspect]
     Active Substance: PREDNISONE
  2. FAMOTIDINE. [Suspect]
     Active Substance: FAMOTIDINE
  3. CEFTRIAXONE. [Suspect]
     Active Substance: CEFTRIAXONE
  4. METHYLPREDNISOLONE. [Suspect]
     Active Substance: METHYLPREDNISOLONE

REACTIONS (4)
  - Clostridium test positive [None]
  - Device related sepsis [None]
  - Electrolyte imbalance [None]
  - Pneumonia [None]

NARRATIVE: CASE EVENT DATE: 20150817
